FAERS Safety Report 19728377 (Version 1)
Quarter: 2021Q3

REPORT INFORMATION
  Report Type: Spontaneous
  Country: CA (occurrence: CA)
  Receive Date: 20210820
  Receipt Date: 20210820
  Transmission Date: 20211014
  Serious: Yes (Hospitalization, Disabling)
  Sender: FDA-Public Use
  Company Number: CA-ACCORD-235280

PATIENT
  Age: 79 Year
  Sex: Male

DRUGS (12)
  1. BASAGLAR KWIKPEN [Concomitant]
     Active Substance: INSULIN GLARGINE
     Dosage: 80 UNITS PER INJECTION DELIVERY SOLUTION SUBCUTENOUS
  2. METFORMIN [Concomitant]
     Active Substance: METFORMIN HYDROCHLORIDE
  3. ROSUVASTATIN/ROSUVASTATIN CALCIUM [Concomitant]
     Active Substance: ROSUVASTATIN CALCIUM
  4. TICAGRELOR. [Concomitant]
     Active Substance: TICAGRELOR
  5. EMPAGLIFLOZIN/LINAGLIPTIN [Concomitant]
     Active Substance: EMPAGLIFLOZIN\LINAGLIPTIN
  6. METOPROLOL. [Concomitant]
     Active Substance: METOPROLOL
  7. PERINDOPRIL [Concomitant]
     Active Substance: PERINDOPRIL
  8. GLYCERYL TRINITRATE [Concomitant]
     Active Substance: NITROGLYCERIN
     Dosage: SPRAY
  9. ROSUVASTATIN. [Suspect]
     Active Substance: ROSUVASTATIN
  10. ACETYLSALICYLIC ACID [Concomitant]
     Active Substance: ASPIRIN
  11. MIRABEGRON [Concomitant]
     Active Substance: MIRABEGRON
  12. CYANOCOBALAMIN. [Concomitant]
     Active Substance: CYANOCOBALAMIN
     Dosage: INJECTION

REACTIONS (6)
  - Dysphagia [Unknown]
  - Asthenia [Unknown]
  - Gait disturbance [Unknown]
  - Gastrointestinal tube insertion [Unknown]
  - Dropped head syndrome [Unknown]
  - Muscular weakness [Unknown]
